FAERS Safety Report 6190053-5 (Version None)
Quarter: 2009Q2

REPORT INFORMATION
  Report Type: 
  Country: None (occurrence: None)
  Receive Date: 20090512
  Receipt Date: 20090512
  Transmission Date: 20091009
  Serious: Yes (Other)
  Sender: FDA-Public Use
  Company Number: None

PATIENT
  Age: 64 Year
  Sex: Male
  Weight: 82.5547 kg

DRUGS (1)
  1. IBUPROFEN [Suspect]
     Indication: BACK PAIN
     Dosage: ONE TABLET ONES A WEEK BUCCAL
     Route: 002

REACTIONS (6)
  - BACK PAIN [None]
  - DYSPNOEA [None]
  - FEAR [None]
  - INSOMNIA [None]
  - PANIC ATTACK [None]
  - TINNITUS [None]
